FAERS Safety Report 6829004-6 (Version None)
Quarter: 2010Q3

REPORT INFORMATION
  Report Type: 
  Country: None (occurrence: None)
  Receive Date: 20100709
  Receipt Date: 20070225
  Transmission Date: 20110219
  Serious: No
  Sender: FDA-Public Use
  Company Number: US-PFIZER INC-2007014928

PATIENT
  Sex: Female
  Weight: 67.13 kg

DRUGS (2)
  1. CHANTIX [Suspect]
     Indication: SMOKING CESSATION THERAPY
     Dates: start: 20061201, end: 20070101
  2. DIURETICS [Concomitant]
     Indication: DIURETIC THERAPY
     Dates: start: 20061201

REACTIONS (1)
  - SWELLING [None]
